FAERS Safety Report 6128071-5 (Version None)
Quarter: 2009Q1

REPORT INFORMATION
  Report Type: 
  Country: None (occurrence: None)
  Receive Date: 20090320
  Receipt Date: 20090320
  Transmission Date: 20090719
  Serious: No
  Sender: FDA-Public Use
  Company Number: None

PATIENT
  Sex: Male

DRUGS (9)
  1. AREDIA [Suspect]
     Indication: MULTIPLE MYELOMA
     Dosage: 90 MG MONTHLY IV
     Route: 042
     Dates: start: 19970701, end: 20010601
  2. AREDIA [Suspect]
     Indication: MULTIPLE MYELOMA
     Dosage: 90 MG MONTHLY IV
     Route: 042
     Dates: start: 20070401, end: 20080601
  3. ZOMETA [Suspect]
     Indication: MULTIPLE MYELOMA
     Dosage: 4 MG MONTHLY IV
     Route: 042
     Dates: start: 20010701, end: 20070301
  4. DECADRON [Concomitant]
  5. REVLIMID [Concomitant]
  6. LYRICA [Concomitant]
  7. VINCRISTINE/ADRIAMYCIN [Concomitant]
  8. DAUNORUBICIN HCL [Concomitant]
  9. STEM CELL TRANSPLANT [Concomitant]

REACTIONS (4)
  - BONE DISORDER [None]
  - OEDEMA [None]
  - PURULENT DISCHARGE [None]
  - SOFT TISSUE DISORDER [None]
